FAERS Safety Report 8796833 (Version 3)
Quarter: 2012Q4

REPORT INFORMATION
  Report Type: Report from Study
  Country: JP (occurrence: JP)
  Receive Date: 20120919
  Receipt Date: 20121226
  Transmission Date: 20130627
  Serious: Yes (Other)
  Sender: FDA-Public Use
  Company Number: JP-VERTEX PHARMACEUTICAL INC.-AE-2012-007780

PATIENT
  Age: 66 Year
  Sex: Male

DRUGS (22)
  1. VX-950 (TELAPREVIR) [Suspect]
     Indication: CHRONIC HEPATITIS C
     Dosage: 2250 mg, qd
     Route: 048
     Dates: start: 20120324, end: 20120424
  2. VX-950 (TELAPREVIR) [Suspect]
     Dosage: 1500 mg, qd
     Route: 048
     Dates: start: 20120426
  3. VX-950 (TELAPREVIR) [Suspect]
     Dosage: 750 mg, qd
     Route: 048
     Dates: start: 20120426
  4. REBETOL [Suspect]
     Indication: CHRONIC HEPATITIS C
     Dosage: 600 mg, qd
     Route: 048
     Dates: start: 20120324, end: 20120420
  5. REBETOL [Suspect]
     Dosage: 400 mg, qd
     Route: 048
     Dates: start: 20120421, end: 20120423
  6. REBETOL [Suspect]
     Dosage: 200 mg, qd
     Route: 048
     Dates: start: 20120424
  7. REBETOL [Suspect]
     Dosage: 200 mg, qd
     Route: 048
     Dates: start: 20120502, end: 20120629
  8. REBETOL [Suspect]
     Dosage: 400 UNK, UNK
     Route: 048
     Dates: start: 20120630, end: 20120803
  9. PEGINTERFERON ALFA-2B [Suspect]
     Indication: CHRONIC HEPATITIS C
     Dosage: 1.5 ?g/kg, UNK
     Route: 058
     Dates: start: 20120324, end: 20120426
  10. PEGINTERFERON ALFA-2B [Suspect]
     Dosage: 0.86 ?g/kg, UNK
     Route: 058
     Dates: start: 20120505
  11. PEGINTERFERON ALFA-2B [Suspect]
     Dosage: 1 ?g/kg, UNK
     Route: 058
     Dates: start: 20120505
  12. PEGINTERFERON ALFA-2B [Suspect]
     Dosage: 1.5 ?g/kg, UNK
     Route: 058
     Dates: start: 20120728, end: 20120728
  13. PEGINTERFERON ALFA-2B [Suspect]
     Dosage: 1 ?g/kg, UNK
     Route: 058
     Dates: start: 20120804
  14. LOPEMIN [Concomitant]
     Dosage: 2 DF, qd
     Route: 048
     Dates: start: 20120502, end: 20120508
  15. LOPEMIN [Concomitant]
     Dosage: 2 DF, qd
     Route: 048
  16. ALLEGRA [Concomitant]
     Dosage: 120 mg, qd
     Route: 048
     Dates: start: 20120323
  17. ALLEGRA [Concomitant]
     Dosage: 2 DF, qd
     Route: 048
  18. RIKKUNSHITO [Concomitant]
     Dosage: 7.5 g, qd
     Route: 048
     Dates: start: 20120323
  19. RIKKUNSHITO [Concomitant]
     Dosage: 7.5 g, qd
     Route: 048
  20. RIKKUNSHITO [Concomitant]
     Dosage: 7.5 g, qd
     Route: 048
     Dates: start: 20120511
  21. TANNALBIN [Concomitant]
     Dosage: 4.5 mg, qd
     Route: 048
     Dates: start: 20120519
  22. LAC-B [Concomitant]
     Dosage: 4.5 mg, qd
     Route: 048
     Dates: start: 20120519

REACTIONS (3)
  - White blood cell count decreased [Not Recovered/Not Resolved]
  - White blood cell count decreased [Not Recovered/Not Resolved]
  - Neutrophil count decreased [Not Recovered/Not Resolved]
